FAERS Safety Report 8531796 (Version 4)
Quarter: 2012Q4

REPORT INFORMATION
  Report Type: 
  Country: GB (occurrence: GB)
  Receive Date: 20120426
  Receipt Date: 20121023
  Transmission Date: 20130627
  Serious: Yes (Hospitalization, Other)
  Sender: FDA-Public Use
  Company Number: PHFR2012GB002441

PATIENT
  Age: 53 Year
  Sex: Male

DRUGS (5)
  1. CLOZARIL [Suspect]
     Indication: SCHIZOPHRENIA
     Route: 048
     Dates: start: 20010701
  2. CLOZARIL [Suspect]
     Dosage: 400 mg, QD
     Route: 048
  3. CLOZARIL [Suspect]
     Dosage: 200 mg, UNK
     Route: 048
     Dates: end: 20120413
  4. CLOZARIL [Suspect]
     Dosage: 300 mg, daily
     Route: 048
  5. HYOSCINE HYDROBROMIDE [Concomitant]

REACTIONS (9)
  - Catatonia [Recovered/Resolved]
  - Pulmonary embolism [Recovered/Resolved]
  - Renal impairment [Recovered/Resolved]
  - Lower respiratory tract infection [Recovered/Resolved]
  - Neuroleptic malignant syndrome [Unknown]
  - Blood creatine phosphokinase increased [Recovered/Resolved]
  - Rhabdomyolysis [Recovered/Resolved]
  - Loss of consciousness [Recovered/Resolved]
  - Antipsychotic drug level increased [Recovered/Resolved]
